FAERS Safety Report 4704616-4 (Version None)
Quarter: 2005Q2

REPORT INFORMATION
  Report Type: 
  Country: None (occurrence: None)
  Receive Date: 20050629
  Receipt Date: 20050616
  Transmission Date: 20051028
  Serious: Yes (Other)
  Sender: FDA-Public Use
  Company Number: 215377

PATIENT
  Age: 37 Year
  Sex: Male
  Weight: 62 kg

DRUGS (12)
  1. RITUXAN [Suspect]
     Indication: NON-HODGKIN'S LYMPHOMA
     Dosage: 700 MG, IV DRIP
     Route: 041
     Dates: start: 20020219, end: 20020320
  2. CYCLOPHOSPHAMIDE [Suspect]
     Indication: NON-HODGKIN'S LYMPHOMA
     Dosage: 2000 MG, INTRAVENOUS
     Route: 042
     Dates: start: 20020219, end: 20020219
  3. DEXAMETHASONE [Suspect]
     Indication: NON-HODGKIN'S LYMPHOMA
     Dosage: 40 MG, INTRAVENOUS
     Route: 042
     Dates: start: 20020219, end: 20020221
  4. ETOPOSIDE [Suspect]
     Indication: NON-HODGKIN'S LYMPHOMA
     Dosage: 170 MG, INTRAVENOUS
     Route: 042
     Dates: start: 20020219, end: 20020221
  5. CYTARABINE [Suspect]
     Indication: NON-HODGKIN'S LYMPHOMA
     Dosage: 3.4 G, INTRAVENOUS
     Route: 042
     Dates: start: 20020220, end: 20020221
  6. FILGRASTIM (FILGRASTIM) [Suspect]
     Dosage: 300 UG, SUBCUTANEOUS
     Route: 058
     Dates: start: 20020228, end: 20050305
  7. ETOPOSIDE [Concomitant]
  8. DOXORUBICIN HCL [Concomitant]
  9. VINCRISTINE [Concomitant]
  10. PREDNISONE [Concomitant]
  11. CYCLOPHOSPHAMIDE [Concomitant]
  12. DICLOFENAC SODIUM [Concomitant]

REACTIONS (9)
  - ABDOMINAL NEOPLASM [None]
  - ANAEMIA [None]
  - BLOOD LACTATE DEHYDROGENASE INCREASED [None]
  - CONDITION AGGRAVATED [None]
  - HEADACHE [None]
  - NEUTROPHIL PERCENTAGE DECREASED [None]
  - PLATELET COUNT DECREASED [None]
  - PROTEIN TOTAL DECREASED [None]
  - WHITE BLOOD CELL COUNT DECREASED [None]
